FAERS Safety Report 6348035-6 (Version None)
Quarter: 2009Q3

REPORT INFORMATION
  Report Type: 
  Country: None (occurrence: None)
  Receive Date: 20090910
  Receipt Date: 20090901
  Transmission Date: 20100115
  Serious: Yes (Other)
  Sender: FDA-Public Use
  Company Number: US-ABBOTT-09P-163-0586668-00

PATIENT
  Sex: Female
  Weight: 103.97 kg

DRUGS (2)
  1. LUPRON DEPOT [Suspect]
     Indication: ENDOMETRIOSIS
     Dates: start: 20090521, end: 20090716
  2. MOTRIN [Concomitant]
     Indication: PAIN

REACTIONS (8)
  - BACK PAIN [None]
  - BLOOD PRESSURE INCREASED [None]
  - CHEST PAIN [None]
  - COSTOCHONDRITIS [None]
  - HEADACHE [None]
  - HOT FLUSH [None]
  - NECK PAIN [None]
  - PAIN IN EXTREMITY [None]
